FAERS Safety Report 19847203 (Version 2)
Quarter: 2021Q3

REPORT INFORMATION
  Report Type: Report from Study
  Country: AR (occurrence: AR)
  Receive Date: 20210917
  Receipt Date: 20210927
  Transmission Date: 20211014
  Serious: Yes (Hospitalization, Other)
  Sender: FDA-Public Use
  Company Number: AR-BRISTOL-MYERS SQUIBB COMPANY-BMS-2021-067271

PATIENT
  Age: 59 Year
  Sex: Male

DRUGS (3)
  1. DICLOFENAC [Suspect]
     Active Substance: DICLOFENAC
     Indication: FIBULA FRACTURE
     Route: 065
  2. DICLOFENAC [Suspect]
     Active Substance: DICLOFENAC
     Indication: TIBIA FRACTURE
  3. ABATACEPT [Suspect]
     Active Substance: ABATACEPT
     Indication: RHEUMATOID ARTHRITIS
     Dosage: 125 MILLIGRAM, QWK
     Route: 058
     Dates: start: 20200827

REACTIONS (6)
  - Tibia fracture [Unknown]
  - Fibula fracture [Unknown]
  - Gastric ulcer [Recovered/Resolved]
  - Condition aggravated [Recovered/Resolved]
  - Osteomyelitis [Recovering/Resolving]
  - Product supply issue [Unknown]

NARRATIVE: CASE EVENT DATE: 20210610
